FAERS Safety Report 7414144-3 (Version None)
Quarter: 2011Q2

REPORT INFORMATION
  Report Type: 
  Country: None (occurrence: None)
  Receive Date: 20110414
  Receipt Date: 20110411
  Transmission Date: 20111010
  Serious: Yes (Other)
  Sender: FDA-Public Use
  Company Number: US-PFIZER INC-2011079841

PATIENT
  Sex: Female
  Weight: 57 kg

DRUGS (2)
  1. CHANTIX [Suspect]
     Indication: SMOKING CESSATION THERAPY
     Dosage: 0.5 MG, 1X/DAY
     Route: 048
     Dates: start: 20090301, end: 20090101
  2. CHANTIX [Suspect]
     Dosage: 0.5 MG, 1X/DAY
     Route: 048
     Dates: start: 20100301

REACTIONS (14)
  - DEHYDRATION [None]
  - HOSTILITY [None]
  - PANIC ATTACK [None]
  - AGITATION [None]
  - DEPRESSION [None]
  - HALLUCINATION [None]
  - PARANOIA [None]
  - HYPERSOMNIA [None]
  - FATIGUE [None]
  - NERVOUSNESS [None]
  - ANXIETY [None]
  - ABNORMAL BEHAVIOUR [None]
  - VOMITING [None]
  - SWELLING [None]
